FAERS Safety Report 4419571-4 (Version None)
Quarter: 2004Q3

REPORT INFORMATION
  Report Type: 
  Country: None (occurrence: None)
  Receive Date: 20040806
  Receipt Date: 20040806
  Transmission Date: 20050211
  Serious: Yes (Hospitalization)
  Sender: FDA-Public Use
  Company Number: None

PATIENT
  Age: 69 Year
  Sex: Male
  Weight: 93.441 kg

DRUGS (15)
  1. CELEBREX [Suspect]
     Indication: NON-SMALL CELL LUNG CANCER STAGE IIIA
     Dosage: 400 MG PO BID
     Route: 048
     Dates: start: 20040429
  2. PLACEBO [Suspect]
     Indication: NON-SMALL CELL LUNG CANCER STAGE IIIA
     Dosage: 400 MG PO BID
     Route: 048
     Dates: start: 20040429
  3. NEXIUM [Concomitant]
  4. LIPITOR [Concomitant]
  5. NORVASC [Concomitant]
  6. ASPIRIN [Concomitant]
  7. PLAVIX [Concomitant]
  8. TOPROL-XL [Concomitant]
  9. VERSLAN [Concomitant]
  10. FOLIC ACID [Concomitant]
  11. GEMFIBROZIL [Concomitant]
  12. ISORDIL [Concomitant]
  13. DIPYRIDAMOLE [Concomitant]
  14. CLONAZEPAM [Concomitant]
  15. NITROLINGUAL [Concomitant]

REACTIONS (2)
  - CHEST PAIN [None]
  - HEMIPARESIS [None]
